FAERS Safety Report 4898156-X (Version None)
Quarter: 2006Q1

REPORT INFORMATION
  Report Type: 
  Country: None (occurrence: None)
  Receive Date: 20060106
  Receipt Date: 20051102
  Transmission Date: 20060701
  Serious: Yes (Other)
  Sender: FDA-Public Use
  Company Number: HQWYE425004NOV05

PATIENT
  Age: 58 Year
  Sex: Female
  Weight: 72.64 kg

DRUGS (1)
  1. PRIMATENE MIST [Suspect]
     Indication: WHEEZING
     Dosage: 1 INHALATION, ONCE, INHALATION
     Route: 055
     Dates: start: 20051001, end: 20051001

REACTIONS (3)
  - HEART RATE INCREASED [None]
  - NAUSEA [None]
  - VOMITING [None]
